FAERS Safety Report 8930365 (Version 4)
Quarter: 2013Q2

REPORT INFORMATION
  Report Type: Spontaneous
  Country: CA (occurrence: CA)
  Receive Date: 20121128
  Receipt Date: 20130404
  Transmission Date: 20140414
  Serious: Yes (Hospitalization, Other)
  Sender: FDA-Public Use
  Company Number: CA-ELI_LILLY_AND_COMPANY-CA201211005527

PATIENT
  Age: 63 Year
  Sex: Female

DRUGS (20)
  1. FORTEO [Suspect]
     Indication: OSTEOPOROSIS
     Dosage: 20 UG, QD
     Route: 058
     Dates: start: 20121010
  2. SYSTANE [Concomitant]
     Route: 047
  3. ASAPHEN [Concomitant]
     Dosage: 80 MG, UNKNOWN
     Route: 065
  4. ENBREL [Concomitant]
     Dosage: 50 MG, UNKNOWN
     Route: 065
  5. CALCITE [Concomitant]
  6. METOPROLOL [Concomitant]
     Dosage: 50 MG, UNKNOWN
     Route: 065
  7. TWYNSTA [Concomitant]
  8. SYNTHROID [Concomitant]
  9. PANTOPRAZOLE [Concomitant]
  10. CELEBREX [Concomitant]
  11. LYRICA [Concomitant]
  12. CYCLOBENZAPRINE [Concomitant]
  13. TYLENOL                                 /SCH/ [Concomitant]
  14. FUROSEMIDE [Concomitant]
  15. ESTRACE [Concomitant]
  16. CALCIUM [Concomitant]
     Dosage: UNK, UNKNOWN
     Route: 065
  17. FRAGMIN [Concomitant]
     Dosage: UNK, UNKNOWN
     Route: 065
  18. ACETAMINOPHEN [Concomitant]
     Dosage: 500 MG, PRN
     Route: 065
  19. TELMISARTAN [Concomitant]
  20. AMLODIPINE [Concomitant]

REACTIONS (4)
  - Femur fracture [Not Recovered/Not Resolved]
  - Fall [Not Recovered/Not Resolved]
  - Pain [Not Recovered/Not Resolved]
  - Nausea [Not Recovered/Not Resolved]
